FAERS Safety Report 7100045-7 (Version None)
Quarter: 2010Q4

REPORT INFORMATION
  Report Type: 
  Country: None (occurrence: None)
  Receive Date: 20101112
  Receipt Date: 20091119
  Transmission Date: 20110411
  Serious: Yes (Death)
  Sender: FDA-Public Use
  Company Number: TH-AMGEN-THASP2009000016

PATIENT

DRUGS (1)
  1. NEULASTIM [Suspect]

REACTIONS (1)
  - DRUG EFFECT DECREASED [None]
